FAERS Safety Report 9954874 (Version 2)
Quarter: 2014Q1

REPORT INFORMATION
  Report Type: Report from Study
  Country: PR (occurrence: PR)
  Receive Date: 20140304
  Receipt Date: 20140304
  Transmission Date: 20141002
  Serious: Yes (Hospitalization)
  Sender: FDA-Public Use
  Company Number: PR-ABBVIE-12P-131-0932889-00

PATIENT
  Age: 55 Year
  Sex: Female
  Weight: 72.64 kg

DRUGS (12)
  1. HUMIRA [Suspect]
     Indication: CROHN^S DISEASE
     Route: 058
     Dates: start: 201108, end: 20130422
  2. HUMIRA [Suspect]
     Route: 058
     Dates: start: 20130429
  3. ADACOL [Concomitant]
     Indication: CROHN^S DISEASE
     Route: 048
     Dates: start: 1999
  4. IMURAN [Concomitant]
     Indication: CROHN^S DISEASE
     Route: 048
     Dates: start: 2008
  5. ZANTAC [Concomitant]
     Indication: DYSPEPSIA
     Route: 048
     Dates: start: 2000
  6. PREDNISONE [Concomitant]
     Indication: CROHN^S DISEASE
     Route: 048
     Dates: start: 201301
  7. OMEPRAZOLE [Concomitant]
     Indication: GASTRITIS
     Dosage: IN THE MORNING
     Route: 048
     Dates: start: 2006
  8. BENTYL [Concomitant]
     Indication: PAIN
     Dosage: 1 TAB DAILY PRN
     Route: 048
     Dates: start: 2003
  9. FOLIC ACID [Concomitant]
     Indication: CROHN^S DISEASE
     Route: 048
     Dates: start: 1988
  10. SIMVASTATIN [Concomitant]
     Indication: HYPERCHOLESTEROLAEMIA
     Route: 048
     Dates: start: 2008
  11. GLUCOTROL XL [Concomitant]
     Indication: DIABETES MELLITUS
     Route: 048
     Dates: start: 2009
  12. ATENOLOL [Concomitant]
     Indication: TACHYCARDIA
     Route: 048

REACTIONS (3)
  - Crohn^s disease [Recovered/Resolved]
  - Fatigue [Recovered/Resolved]
  - Nasopharyngitis [Recovered/Resolved]
